FAERS Safety Report 18225919 (Version 3)
Quarter: 2020Q3

REPORT INFORMATION
  Report Type: Spontaneous
  Country: FR (occurrence: FR)
  Receive Date: 20200903
  Receipt Date: 20200914
  Transmission Date: 20201103
  Serious: Yes (Other)
  Sender: FDA-Public Use
  Company Number: FR-VIIV HEALTHCARE LIMITED-FR2020173795

PATIENT
  Age: 62 Year
  Sex: Male

DRUGS (1)
  1. TRIUMEQ [Suspect]
     Active Substance: ABACAVIR SULFATE\DOLUTEGRAVIR SODIUM\LAMIVUDINE
     Indication: PRODUCT USED FOR UNKNOWN INDICATION
     Dosage: 1 DF, QD, TABLET

REACTIONS (6)
  - Bone decalcification [Unknown]
  - Neck pain [Unknown]
  - Condition aggravated [Unknown]
  - Osteonecrosis [Unknown]
  - Arthrodesis [Unknown]
  - Intervertebral disc protrusion [Unknown]
